FAERS Safety Report 7956260-3 (Version None)
Quarter: 2011Q4

REPORT INFORMATION
  Report Type: 
  Country: None (occurrence: None)
  Receive Date: 20111205
  Receipt Date: 20111122
  Transmission Date: 20120403
  Serious: Yes (Other)
  Sender: FDA-Public Use
  Company Number: IN-RANBAXY-2011US-50763

PATIENT
  Age: 19 Year
  Sex: Male

DRUGS (3)
  1. SERTRALINE HYDROCHLORIDE [Suspect]
     Indication: PRODUCT USED FOR UNKNOWN INDICATION
     Dosage: 50 MG PER DAY
     Route: 065
  2. SERTRALINE HYDROCHLORIDE [Suspect]
     Dosage: 100 MG PER DAY
     Route: 065
  3. CLOZAPINE [Suspect]
     Indication: SCHIZOPHRENIA
     Dosage: 300 MG, DAY
     Route: 065

REACTIONS (1)
  - PARTIAL SEIZURES WITH SECONDARY GENERALISATION [None]
